FAERS Safety Report 6533847-6 (Version None)
Quarter: 2010Q1

REPORT INFORMATION
  Report Type: 
  Country: None (occurrence: None)
  Receive Date: 20100111
  Receipt Date: 20090813
  Transmission Date: 20100710
  Serious: No
  Sender: FDA-Public Use
  Company Number: US-ABBOTT-09P-163-0592107-00

PATIENT
  Age: 89 Year
  Sex: Female
  Weight: 75.818 kg

DRUGS (4)
  1. VICODIN [Suspect]
     Indication: PAIN MANAGEMENT
     Dosage: 500/5 MG AS NEED EVERY 6 HRS
     Route: 048
     Dates: start: 20090803, end: 20090813
  2. UNKNOWN MEDICATION [Concomitant]
     Indication: DRUG USE FOR UNKNOWN INDICATION
     Dates: start: 20090803, end: 20090803
  3. ZIAC [Concomitant]
     Indication: HYPERTENSION
     Route: 048
     Dates: start: 20030101
  4. TYLOX [Concomitant]
     Indication: ARTHRALGIA
     Dates: start: 19890101

REACTIONS (3)
  - ASTHENIA [None]
  - CHEST PAIN [None]
  - DYSPNOEA [None]
